FAERS Safety Report 6916489-X (Version None)
Quarter: 2010Q3

REPORT INFORMATION
  Report Type: 
  Country: None (occurrence: None)
  Receive Date: 20100810
  Receipt Date: 20100806
  Transmission Date: 20110219
  Serious: Yes (Hospitalization)
  Sender: FDA-Public Use
  Company Number: DE-BRISTOL-MYERS SQUIBB COMPANY-15150493

PATIENT
  Age: 58 Year
  Sex: Male
  Weight: 74 kg

DRUGS (5)
  1. ONGLYZA [Suspect]
     Indication: TYPE 2 DIABETES MELLITUS
     Dates: start: 20100201
  2. APROVEL [Concomitant]
     Indication: HYPERTENSION
  3. DILATREND [Concomitant]
     Indication: HYPERTENSION
  4. BAYOTENSIN [Concomitant]
     Indication: HYPERTENSION
  5. ESIDRIX [Concomitant]
     Indication: HYPERTENSION

REACTIONS (1)
  - DERMATITIS ACNEIFORM [None]
